FAERS Safety Report 21462700 (Version 3)
Quarter: 2022Q4

REPORT INFORMATION
  Report Type: Report from Study
  Country: US (occurrence: US)
  Receive Date: 20221017
  Receipt Date: 20221028
  Transmission Date: 20230113
  Serious: Yes (Hospitalization)
  Sender: FDA-Public Use
  Company Number: US-NOVARTISPH-NVSC2022US164127

PATIENT
  Age: 34 Year
  Sex: Male
  Weight: 120.6 kg

DRUGS (13)
  1. KESIMPTA [Suspect]
     Active Substance: OFATUMUMAB
     Indication: Relapsing multiple sclerosis
     Dosage: 1 DOSAGE FORM, QMO
     Route: 058
     Dates: start: 20210811, end: 20220615
  2. ERGOCALCIFEROL [Concomitant]
     Active Substance: ERGOCALCIFEROL
     Indication: General physical condition
     Dosage: UNK
     Route: 065
     Dates: start: 20210616
  3. OLOPATADINE [Concomitant]
     Active Substance: OLOPATADINE
     Indication: Vision blurred
     Dosage: UNK
     Route: 065
     Dates: start: 2022
  4. ALBUTEROL SULFATE [Concomitant]
     Active Substance: ALBUTEROL SULFATE
     Indication: Asthma
     Dosage: 90 UG, PRN (INHALER)
     Route: 065
     Dates: start: 20150630
  5. ALBUTEROL SULFATE [Concomitant]
     Active Substance: ALBUTEROL SULFATE
     Dosage: 2.5 MG, PRN (NEBULISER)
     Route: 065
     Dates: start: 20180426
  6. LISINOPRIL [Concomitant]
     Active Substance: LISINOPRIL
     Indication: Hypertension
     Dosage: 10 MG, QD
     Route: 048
     Dates: start: 20190422, end: 20220727
  7. PREGABALIN [Concomitant]
     Active Substance: PREGABALIN
     Indication: Muscle spasms
     Dosage: UNK
     Route: 065
     Dates: start: 2022
  8. NOVOLOG [Concomitant]
     Active Substance: INSULIN ASPART
     Indication: Type 1 diabetes mellitus
     Dosage: 100 UNITS, QD
     Route: 048
     Dates: start: 20201105, end: 20220727
  9. TRAZODONE [Concomitant]
     Active Substance: TRAZODONE HYDROCHLORIDE
     Indication: Anxiety
     Dosage: 50 MG, QD
     Route: 048
     Dates: start: 20211201, end: 20220727
  10. OCRELIZUMAB [Concomitant]
     Active Substance: OCRELIZUMAB
     Indication: Multiple sclerosis
     Dosage: UNK
     Route: 065
     Dates: start: 20191219, end: 20201217
  11. VITAMIN D2 [Concomitant]
     Active Substance: ERGOCALCIFEROL
     Indication: Supplementation therapy
     Dosage: 50,000 UNITS, QW
     Route: 048
     Dates: start: 20210616, end: 202207
  12. VITAMIN D3 [Concomitant]
     Active Substance: CHOLECALCIFEROL
     Indication: Supplementation therapy
     Dosage: 5,000 UNITS, QD
     Route: 048
     Dates: start: 2021, end: 20220713
  13. DOXYCYCLINE HYCLATE [Concomitant]
     Active Substance: DOXYCYCLINE HYCLATE
     Indication: Wound
     Dosage: UNK
     Route: 065
     Dates: start: 20220718, end: 20220913

REACTIONS (3)
  - Infective myositis [Not Recovered/Not Resolved]
  - Deep vein thrombosis [Recovered/Resolved]
  - Sciatic nerve injury [Not Recovered/Not Resolved]

NARRATIVE: CASE EVENT DATE: 20220713
